FAERS Safety Report 6387237-X (Version None)
Quarter: 2009Q3

REPORT INFORMATION
  Report Type: 
  Country: None (occurrence: None)
  Receive Date: 20090928
  Receipt Date: 20090916
  Transmission Date: 20100115
  Serious: No
  Sender: FDA-Public Use
  Company Number: 2009010448

PATIENT
  Age: 31 Year
  Sex: Female

DRUGS (2)
  1. FENTORA [Suspect]
     Indication: MIGRAINE
     Dosage: (1 IN 3 HR), BUCCAL
     Route: 002
     Dates: start: 20081201, end: 20081201
  2. PAXIL [Concomitant]

REACTIONS (3)
  - DRUG INEFFECTIVE [None]
  - GINGIVAL ERYTHEMA [None]
  - GINGIVAL PAIN [None]
